FAERS Safety Report 4796833-2 (Version None)
Quarter: 2005Q4

REPORT INFORMATION
  Report Type: 
  Country: None (occurrence: None)
  Receive Date: 20051013
  Receipt Date: 20050713
  Transmission Date: 20060501
  Serious: Yes (Hospitalization)
  Sender: FDA-Public Use
  Company Number: JP-SANOFI-SYNTHELABO-F01200501237

PATIENT
  Sex: Female
  Weight: 41 kg

DRUGS (12)
  1. OXALIPLATIN [Suspect]
     Indication: COLON CANCER
     Route: 041
     Dates: start: 20050520, end: 20050520
  2. ISOVORIN [Concomitant]
     Route: 041
     Dates: start: 20050520, end: 20050521
  3. FLUOROURACIL [Concomitant]
     Dosage: 500 MG/BODY = 406.5 MG/M2 AS BOLUS, THEN 750 MG/BODY = 609.8 MG/M2 AS 22 HOUR CONTINUOUS INFUSION ON
     Dates: start: 20050520, end: 20050521
  4. NAPROXEN [Suspect]
     Indication: CANCER PAIN
     Route: 048
     Dates: start: 20050525, end: 20050529
  5. MORPHINE [Concomitant]
     Route: 041
     Dates: start: 20050529, end: 20050605
  6. LASIX [Concomitant]
     Route: 042
     Dates: start: 20050529, end: 20050609
  7. OMEPRAZOLE [Concomitant]
     Route: 042
     Dates: start: 20050529, end: 20050603
  8. SOLDEM [Concomitant]
     Route: 041
     Dates: start: 20050529, end: 20050609
  9. RED BLOOD CELLS [Concomitant]
     Route: 041
     Dates: start: 20050529, end: 20050529
  10. DECADRON [Concomitant]
     Route: 041
     Dates: start: 20050530, end: 20050609
  11. CATABON [Concomitant]
     Route: 041
     Dates: start: 20050602, end: 20050604
  12. TAGAMET FOR INJECTION [Concomitant]
     Dosage: 4 DF
     Route: 041
     Dates: start: 20050604, end: 20050609

REACTIONS (8)
  - ASCITES [None]
  - COLON CANCER [None]
  - DEPRESSED LEVEL OF CONSCIOUSNESS [None]
  - GASTRIC MUCOSAL LESION [None]
  - HAEMOGLOBIN DECREASED [None]
  - LOSS OF CONSCIOUSNESS [None]
  - MALIGNANT NEOPLASM PROGRESSION [None]
  - UPPER GASTROINTESTINAL HAEMORRHAGE [None]
